FAERS Safety Report 14304887 (Version 1)
Quarter: 2017Q4

REPORT INFORMATION
  Report Type: Spontaneous
  Country: JP (occurrence: JP)
  Receive Date: 20171219
  Receipt Date: 20171219
  Transmission Date: 20180321
  Serious: Yes (Death, Life-Threatening, Other)
  Sender: FDA-Public Use
  Company Number: JP-OTSUKA-BJ20121894

PATIENT
  Age: 68 Year
  Sex: Male

DRUGS (22)
  1. ABILIFY [Suspect]
     Active Substance: ARIPIPRAZOLE
     Indication: BIPOLAR DISORDER
     Dosage: 24 MG, QD
     Route: 048
     Dates: start: 20120123, end: 20120308
  2. LAMICTAL [Suspect]
     Active Substance: LAMOTRIGINE
     Indication: BIPOLAR DISORDER
     Dosage: 25 MG, QD
     Route: 048
     Dates: start: 20120116, end: 20120129
  3. LEVOTOMIN [Suspect]
     Active Substance: LEVOMEPROMAZINE
     Dosage: 25 MG, QD
     Route: 048
     Dates: start: 20120210, end: 20120301
  4. LEVOTOMIN [Suspect]
     Active Substance: LEVOMEPROMAZINE
     Dosage: 75 MG, QD
     Route: 048
     Dates: start: 20120316
  5. LITIOMAL [Concomitant]
     Active Substance: LITHIUM CARBONATE
     Indication: BIPOLAR DISORDER
     Dosage: 200 MG, TID
     Route: 048
     Dates: end: 20120316
  6. SENNA [Concomitant]
     Active Substance: SENNA LEAF\SENNOSIDES\SENNOSIDES A AND B
     Indication: PRODUCT USED FOR UNKNOWN INDICATION
     Dosage: UNK, SOLUTION (EXCEPT SYRUP) AND TAB
     Route: 065
     Dates: end: 20120316
  7. BENZALIN [Concomitant]
     Active Substance: NITRAZEPAM
     Indication: INSOMNIA
     Dosage: 10 MG, QD
     Route: 048
     Dates: end: 20120316
  8. SENNOSIDE [Concomitant]
     Active Substance: SENNOSIDES
     Indication: CONSTIPATION
     Dosage: 48 MG, QD
     Route: 048
     Dates: end: 20120316
  9. LEVOTOMIN [Suspect]
     Active Substance: LEVOMEPROMAZINE
     Indication: BIPOLAR DISORDER
     Dosage: 25 MG, TID
     Route: 048
     Dates: end: 20120209
  10. HIBERNA [Concomitant]
     Active Substance: PROMETHAZINE HYDROCHLORIDE
     Dosage: 25 MG, TID
     Route: 048
     Dates: start: 20120309
  11. MAGMITT [Concomitant]
     Active Substance: MAGNESIUM OXIDE
     Indication: CONSTIPATION
     Dosage: 1000 MG, TID
     Route: 048
     Dates: end: 20120316
  12. LAMICTAL [Suspect]
     Active Substance: LAMOTRIGINE
     Dosage: 50 MG, QD
     Route: 048
     Dates: start: 20120130, end: 20120209
  13. FLUNITRAZEPAM [Concomitant]
     Active Substance: FLUNITRAZEPAM
     Indication: INSOMNIA
     Dosage: 4 MG, QD
     Route: 048
     Dates: end: 20120316
  14. LAMICTAL [Suspect]
     Active Substance: LAMOTRIGINE
     Dosage: 50 MG, BID
     Route: 048
     Dates: start: 20120224, end: 20120316
  15. ABILIFY [Suspect]
     Active Substance: ARIPIPRAZOLE
     Dosage: 30 MG, QD
     Route: 048
     Dates: start: 20120309, end: 20120316
  16. LAMICTAL [Suspect]
     Active Substance: LAMOTRIGINE
     Dosage: 75 MG, QD
     Route: 048
     Dates: start: 20120210, end: 20120223
  17. LEVOTOMIN [Suspect]
     Active Substance: LEVOMEPROMAZINE
     Dosage: 25 MG, QD
     Route: 048
     Dates: start: 20120309, end: 20120311
  18. LEVOTOMIN [Suspect]
     Active Substance: LEVOMEPROMAZINE
     Dosage: 50 MG, TID
     Route: 048
     Dates: start: 20120312, end: 20120315
  19. HIBERNA [Concomitant]
     Active Substance: PROMETHAZINE HYDROCHLORIDE
     Indication: PARKINSONISM
     Dosage: 25 MG, TID
     Route: 048
     Dates: end: 20120301
  20. DAIOKANZOTO [Concomitant]
     Active Substance: LICORICE ROOT EXTRACT\RHUBARB
     Indication: CONSTIPATION
     Dosage: 1 G, TID
     Route: 048
     Dates: end: 20120316
  21. GASOAL [Concomitant]
     Indication: ABDOMINAL DISTENSION
     Dosage: 40 MG, TID
     Route: 048
     Dates: end: 20120316
  22. SORENTMIN [Concomitant]
     Active Substance: BROTIZOLAM
     Indication: INSOMNIA
     Dosage: 0.25 MG, QD
     Route: 048
     Dates: end: 20120316

REACTIONS (6)
  - Pyrexia [Fatal]
  - Aspartate aminotransferase increased [Fatal]
  - Blood creatine phosphokinase increased [Fatal]
  - White blood cell count increased [Fatal]
  - Death [Fatal]
  - Sedation complication [Unknown]

NARRATIVE: CASE EVENT DATE: 20120314
